FAERS Safety Report 19043350 (Version 1)
Quarter: 2021Q1

REPORT INFORMATION
  Report Type: Spontaneous
  Country: US (occurrence: US)
  Receive Date: 20210322
  Receipt Date: 20210322
  Transmission Date: 20210420
  Serious: Yes (Hospitalization)
  Sender: FDA-Public Use
  Company Number: None

PATIENT
  Age: 75 Year
  Sex: Female

DRUGS (1)
  1. OPSUMIT [Suspect]
     Active Substance: MACITENTAN
     Indication: PULMONARY ARTERIAL HYPERTENSION
     Route: 048
     Dates: start: 20190314

REACTIONS (5)
  - Dyspnoea [None]
  - Oedema peripheral [None]
  - Acute respiratory failure [None]
  - Condition aggravated [None]
  - Cardiac failure congestive [None]

NARRATIVE: CASE EVENT DATE: 20210311
